FAERS Safety Report 7213756-X (Version None)
Quarter: 2011Q1

REPORT INFORMATION
  Report Type: 
  Country: None (occurrence: None)
  Receive Date: 20110106
  Receipt Date: 20101228
  Transmission Date: 20110831
  Serious: Yes (Hospitalization)
  Sender: FDA-Public Use
  Company Number: JP-PFIZER INC-2010180678

PATIENT
  Age: 73 Year
  Sex: Male

DRUGS (4)
  1. SOLETON [Concomitant]
     Dosage: UNK
     Route: 048
  2. MUCOSTA [Concomitant]
     Dosage: UNK
     Route: 048
  3. LYRICA [Suspect]
     Indication: SCIATICA
     Dosage: 150 MG DAILY
     Route: 048
     Dates: start: 20101222
  4. NEUROTROPIN [Concomitant]
     Dosage: UNK
     Route: 042

REACTIONS (1)
  - PHARYNGEAL ULCERATION [None]
